FAERS Safety Report 12281357 (Version 1)
Quarter: 2016Q2

REPORT INFORMATION
  Report Type: Spontaneous
  Country: JP (occurrence: JP)
  Receive Date: 20160419
  Receipt Date: 20160419
  Transmission Date: 20160815
  Serious: Yes (Other)
  Sender: FDA-Public Use
  Company Number: JP-PFIZER INC-2016163492

PATIENT

DRUGS (2)
  1. DELAMANID [Suspect]
     Active Substance: DELAMANID
     Dosage: 200 MG, DAILY
     Route: 048
  2. ZYVOX [Suspect]
     Active Substance: LINEZOLID
     Indication: TUBERCULOSIS
     Dosage: 600 MG, DAILY
     Route: 048
     Dates: start: 201602

REACTIONS (2)
  - Electrocardiogram QT prolonged [Unknown]
  - Product use issue [Unknown]

NARRATIVE: CASE EVENT DATE: 2016
